FAERS Safety Report 8835972 (Version 1)
Quarter: 2012Q4

REPORT INFORMATION
  Report Type: 
  Country: US (occurrence: US)
  Receive Date: 20121011
  Receipt Date: 20121011
  Transmission Date: 20130627
  Serious: Yes (Death, Hospitalization, Other)
  Sender: FDA-Public Use
  Company Number: US-NOVOPROD-361457

PATIENT
  Sex: Female

DRUGS (2)
  1. NOVOLOG FLEXPEN [Suspect]
     Indication: DIABETES MELLITUS
     Route: 058
  2. LANTUS [Suspect]
     Indication: DIABETES MELLITUS
     Route: 058

REACTIONS (4)
  - Disease complication [Fatal]
  - Pneumonia [Unknown]
  - Parkinson^s disease [Unknown]
  - Blood glucose increased [Unknown]
